FAERS Safety Report 5610516-8 (Version None)
Quarter: 2008Q1

REPORT INFORMATION
  Report Type: 
  Country: None (occurrence: None)
  Receive Date: 20080201
  Receipt Date: 20080123
  Transmission Date: 20080703
  Serious: Yes (Hospitalization)
  Sender: FDA-Public Use
  Company Number: IE-BRISTOL-MYERS SQUIBB COMPANY-14060651

PATIENT
  Age: 66 Year
  Sex: Male

DRUGS (1)
  1. GLUCOPHAGE [Suspect]
     Route: 048

REACTIONS (1)
  - RENAL FAILURE [None]
